FAERS Safety Report 9065571 (Version 1)
Quarter: 2013Q1

REPORT INFORMATION
  Report Type: Spontaneous
  Country: IT (occurrence: IT)
  Receive Date: 20130131
  Receipt Date: 20130131
  Transmission Date: 20140127
  Serious: Yes (Other)
  Sender: FDA-Public Use
  Company Number: IT-BRISTOL-MYERS SQUIBB COMPANY-17316316

PATIENT
  Age: 67 Year
  Sex: Male
  Weight: 93 kg

DRUGS (6)
  1. METFORMIN HCL [Suspect]
     Indication: HYPERGLYCAEMIA
     Route: 048
     Dates: start: 20020101, end: 20121201
  2. SITAGLIPTIN PHOSPHATE [Concomitant]
  3. GLIBOMET [Concomitant]
     Dosage: 1DF:400MG+2.5MG
  4. NORVASC [Concomitant]
  5. KARVEZIDE [Concomitant]
     Dosage: 1DF:300MG/25MG
  6. NEBILOX [Concomitant]

REACTIONS (1)
  - Coeliac disease [Not Recovered/Not Resolved]
